FAERS Safety Report 25066900 (Version 1)
Quarter: 2025Q1

REPORT INFORMATION
  Report Type: Spontaneous
  Country: CA (occurrence: CA)
  Receive Date: 20250312
  Receipt Date: 20250312
  Transmission Date: 20250409
  Serious: Yes (Hospitalization, Disabling, Other)
  Sender: TEVA
  Company Number: CA-TEVA-VS-3308641

PATIENT
  Age: 18 Year
  Sex: Male
  Weight: 92 kg

DRUGS (20)
  1. FLUOXETINE [Suspect]
     Active Substance: FLUOXETINE HYDROCHLORIDE
     Indication: Obsessive-compulsive disorder
     Route: 048
  2. CLONAZEPAM [Concomitant]
     Active Substance: CLONAZEPAM
     Indication: Product used for unknown indication
     Route: 065
  3. TEZSPIRE [Concomitant]
     Active Substance: TEZEPELUMAB-EKKO
     Indication: Product used for unknown indication
     Route: 065
  4. SEROQUEL XR [Concomitant]
     Active Substance: QUETIAPINE FUMARATE
     Indication: Product used for unknown indication
     Route: 065
  5. CHOLECALCIFEROL [Concomitant]
     Active Substance: CHOLECALCIFEROL
     Indication: Product used for unknown indication
     Route: 065
  6. GLYCOPYRROLATE\INDACATEROL\MOMETASONE FUROATE [Concomitant]
     Active Substance: GLYCOPYRROLATE\INDACATEROL\MOMETASONE FUROATE
     Indication: Product used for unknown indication
     Route: 065
  7. KETOROLAC [Concomitant]
     Active Substance: KETOROLAC TROMETHAMINE
     Indication: Product used for unknown indication
     Route: 065
  8. GUANFACINE [Concomitant]
     Active Substance: GUANFACINE
     Indication: Product used for unknown indication
     Route: 065
  9. BETAMETHASONE VALERATE [Concomitant]
     Active Substance: BETAMETHASONE VALERATE
     Indication: Product used for unknown indication
     Route: 065
  10. LORAZEPAM [Concomitant]
     Active Substance: LORAZEPAM
     Indication: Product used for unknown indication
     Route: 065
  11. ONDANSETRON [Concomitant]
     Active Substance: ONDANSETRON
     Indication: Product used for unknown indication
     Route: 065
  12. ALBUTEROL [Concomitant]
     Active Substance: ALBUTEROL
     Indication: Product used for unknown indication
     Route: 065
  13. OMNARIS [Concomitant]
     Active Substance: CICLESONIDE
     Indication: Product used for unknown indication
     Route: 065
  14. SYMBICORT [Concomitant]
     Active Substance: BUDESONIDE\FORMOTEROL FUMARATE DIHYDRATE
     Indication: Product used for unknown indication
     Route: 065
  15. MYRBETRIQ [Concomitant]
     Active Substance: MIRABEGRON
     Indication: Product used for unknown indication
     Route: 065
  16. SEROQUEL [Concomitant]
     Active Substance: QUETIAPINE FUMARATE
     Indication: Product used for unknown indication
     Route: 065
  17. HALOPERIDOL [Concomitant]
     Active Substance: HALOPERIDOL
     Indication: Product used for unknown indication
     Route: 065
  18. ESTRADIOL [Concomitant]
     Active Substance: ESTRADIOL
     Indication: Product used for unknown indication
     Route: 065
  19. CYPROTERONE [Concomitant]
     Active Substance: CYPROTERONE
     Indication: Product used for unknown indication
     Route: 065
  20. CETIRIZINE [Concomitant]
     Active Substance: CETIRIZINE HYDROCHLORIDE
     Indication: Product used for unknown indication
     Route: 065

REACTIONS (2)
  - Suicide attempt [Recovering/Resolving]
  - Emotional distress [Recovering/Resolving]
